FAERS Safety Report 7484343-3 (Version None)
Quarter: 2011Q2

REPORT INFORMATION
  Report Type: 
  Country: None (occurrence: None)
  Receive Date: 20110517
  Receipt Date: 20110506
  Transmission Date: 20111010
  Serious: Yes (Hospitalization)
  Sender: FDA-Public Use
  Company Number: FR-BRISTOL-MYERS SQUIBB COMPANY-15746407

PATIENT
  Age: 33 Year
  Sex: Female

DRUGS (3)
  1. GLUCOPHAGE [Suspect]
     Route: 048
  2. EUGYNON 50 [Concomitant]
  3. ACETAMINOPHEN [Concomitant]

REACTIONS (1)
  - HAEMOLYTIC ANAEMIA [None]
